FAERS Safety Report 21682292 (Version 2)
Quarter: 2023Q1

REPORT INFORMATION
  Report Type: Spontaneous
  Country: CA (occurrence: None)
  Receive Date: 20221205
  Receipt Date: 20230131
  Transmission Date: 20230417
  Serious: Yes (Hospitalization, Other)
  Sender: FDA-Public Use
  Company Number: CA-ROCHE-3229935

PATIENT
  Sex: Female

DRUGS (21)
  1. CELLCEPT [Suspect]
     Active Substance: MYCOPHENOLATE MOFETIL
     Indication: Product used for unknown indication
     Route: 065
  2. CARBIDOPA\LEVODOPA [Suspect]
     Active Substance: CARBIDOPA\LEVODOPA
     Indication: Renal disorder
     Route: 065
  3. APIXABAN [Concomitant]
     Active Substance: APIXABAN
  4. BUDESONIDE [Concomitant]
     Active Substance: BUDESONIDE
  5. DOCUSATE SODIUM [Concomitant]
     Active Substance: DOCUSATE SODIUM
  6. DOXAZOSIN [Concomitant]
     Active Substance: DOXAZOSIN MESYLATE
  7. FAMOTIDINE [Concomitant]
     Active Substance: FAMOTIDINE
  8. FLUTICASONE FUROATE [Concomitant]
     Active Substance: FLUTICASONE FUROATE
  9. FUROSEMIDE [Concomitant]
     Active Substance: FUROSEMIDE
  10. IRBESARTAN [Concomitant]
     Active Substance: IRBESARTAN
  11. LEVOTHYROXINE [Concomitant]
     Active Substance: LEVOTHYROXINE
  12. MONTELUKAST [Concomitant]
     Active Substance: MONTELUKAST SODIUM
  13. OXYCODONE [Concomitant]
     Active Substance: OXYCODONE
  14. OXYCODONE [Concomitant]
     Active Substance: OXYCODONE
  15. PERCOCET [Concomitant]
     Active Substance: ACETAMINOPHEN\OXYCODONE HYDROCHLORIDE
  16. PLAQUENIL [Concomitant]
     Active Substance: HYDROXYCHLOROQUINE SULFATE
  17. POLYETHYLENE GLYCOL [Concomitant]
     Active Substance: POLYETHYLENE GLYCOL
  18. PREDNISONE [Concomitant]
     Active Substance: PREDNISONE
  19. RISEDRONATE SODIUM [Concomitant]
     Active Substance: RISEDRONATE SODIUM
  20. ALBUTEROL [Concomitant]
     Active Substance: ALBUTEROL
  21. VITAMIN D [Concomitant]
     Active Substance: VITAMIN D NOS

REACTIONS (7)
  - Weight decreased [Unknown]
  - Decreased appetite [Unknown]
  - Nephropathy [Unknown]
  - Giant cell arteritis [Unknown]
  - Arthropathy [Unknown]
  - Mobility decreased [Unknown]
  - Ill-defined disorder [Unknown]
